FAERS Safety Report 24398863 (Version 1)
Quarter: 2024Q4

REPORT INFORMATION
  Report Type: Spontaneous
  Country: US (occurrence: None)
  Receive Date: 20241004
  Receipt Date: 20241004
  Transmission Date: 20250114
  Serious: No
  Sender: Public
  Company Number: None

PATIENT
  Age: 11 Week
  Sex: Male
  Weight: 3.6 kg

DRUGS (1)
  1. NIRSEVIMAB [Suspect]
     Active Substance: NIRSEVIMAB
     Dosage: 50 UG MICROGRAM (S) 1 TIME DOSE INTRAMUSCULAR
     Route: 030

REACTIONS (1)
  - Vaccination site swelling [None]

NARRATIVE: CASE EVENT DATE: 20241002
